FAERS Safety Report 6832003-1 (Version None)
Quarter: 2010Q3

REPORT INFORMATION
  Report Type: 
  Country: None (occurrence: None)
  Receive Date: 20100712
  Receipt Date: 20100630
  Transmission Date: 20110219
  Serious: Yes (Hospitalization)
  Sender: FDA-Public Use
  Company Number: FR-ELI_LILLY_AND_COMPANY-FR201006007759

PATIENT
  Sex: Male

DRUGS (3)
  1. EFFIENT [Suspect]
     Dosage: UNK, UNKNOWN
     Route: 048
     Dates: start: 20100401
  2. TAHOR [Concomitant]
     Dosage: 40 MG, DAILY (1/D)
     Route: 048
     Dates: start: 20100401, end: 20100508
  3. TRIATEC [Concomitant]
     Dosage: 2.5 MG, DAILY (1/D)
     Route: 048
     Dates: start: 20100428, end: 20100508

REACTIONS (2)
  - HEPATOCELLULAR INJURY [None]
  - RHABDOMYOLYSIS [None]
